FAERS Safety Report 26202382 (Version 1)
Quarter: 2025Q4

REPORT INFORMATION
  Report Type: Spontaneous
  Country: US (occurrence: US)
  Receive Date: 20251226
  Receipt Date: 20251226
  Transmission Date: 20260118
  Serious: Yes (Other)
  Sender: JOHNSON AND JOHNSON
  Company Number: US-JNJFOC-20251226495

PATIENT

DRUGS (2)
  1. INLEXZO [Suspect]
     Active Substance: GEMCITABINE
     Indication: Product used for unknown indication
  2. INLEXZO [Suspect]
     Active Substance: GEMCITABINE

REACTIONS (1)
  - Carcinoma in situ [Unknown]
